FAERS Safety Report 19998782 (Version 2)
Quarter: 2021Q4

REPORT INFORMATION
  Report Type: Spontaneous
  Country: US (occurrence: US)
  Receive Date: 20211027
  Receipt Date: 20211026
  Transmission Date: 20220303
  Serious: No
  Sender: FDA-Public Use
  Company Number: US-ROCHE-2777462

PATIENT
  Sex: Female

DRUGS (1)
  1. COTELLIC [Suspect]
     Active Substance: COBIMETINIB
     Indication: Metastasis
     Dosage: DAILY FOR 21 DAYS ON, AND 7 DAYS OFF
     Route: 048

REACTIONS (1)
  - Fatigue [Not Recovered/Not Resolved]
